FAERS Safety Report 8013701-3 (Version None)
Quarter: 2011Q4

REPORT INFORMATION
  Report Type: 
  Country: None (occurrence: None)
  Receive Date: 20111229
  Receipt Date: 20111216
  Transmission Date: 20120403
  Serious: Yes (Other)
  Sender: FDA-Public Use
  Company Number: US-ELI_LILLY_AND_COMPANY-US201109005037

PATIENT
  Sex: Female

DRUGS (4)
  1. FORTEO [Suspect]
     Indication: OSTEOPOROSIS
     Dosage: 20 UG, QD
     Route: 065
     Dates: start: 20110701
  2. FORTEO [Suspect]
     Dosage: 20 UG, QD
  3. FLEXERIL [Concomitant]
  4. FORTEO [Suspect]
     Dosage: 20 UG, QD
     Route: 065

REACTIONS (5)
  - HERNIA HIATUS REPAIR [None]
  - MUSCLE SPASMS [None]
  - HAEMORRHAGE [None]
  - DRY MOUTH [None]
  - INJURY ASSOCIATED WITH DEVICE [None]
